FAERS Safety Report 7957136-8 (Version None)
Quarter: 2011Q4

REPORT INFORMATION
  Report Type: 
  Country: None (occurrence: None)
  Receive Date: 20111205
  Receipt Date: 20111128
  Transmission Date: 20120403
  Serious: Yes (Death)
  Sender: FDA-Public Use
  Company Number: FR-ROCHE-626116

PATIENT
  Sex: Male
  Weight: 60 kg

DRUGS (9)
  1. CYCLOPHOSPHAMIDE [Suspect]
     Indication: B-CELL LYMPHOMA
     Route: 042
  2. DOXORUBICIN HCL [Suspect]
     Indication: B-CELL LYMPHOMA
     Route: 042
  3. METHYLPREDNISOLONE [Suspect]
     Indication: B-CELL LYMPHOMA
     Route: 042
  4. METHOTREXATE [Suspect]
     Indication: B-CELL LYMPHOMA
     Route: 042
  5. VINCRISTINE [Suspect]
     Indication: B-CELL LYMPHOMA
     Route: 042
  6. CYTARABINE [Suspect]
     Indication: B-CELL LYMPHOMA
     Dosage: ROUTE: IT
     Route: 037
  7. CYTARABINE [Suspect]
     Route: 042
  8. METHYLPREDNISOLONE SODIUM SUCCINATE [Suspect]
     Indication: B-CELL LYMPHOMA
     Route: 042
  9. MABTHERA [Suspect]
     Indication: B-CELL LYMPHOMA
     Route: 042

REACTIONS (1)
  - SUDDEN DEATH [None]
